FAERS Safety Report 5501548-9 (Version None)
Quarter: 2007Q4

REPORT INFORMATION
  Report Type: 
  Country: None (occurrence: None)
  Receive Date: 20071022
  Receipt Date: 20070731
  Transmission Date: 20080405
  Serious: No
  Sender: FDA-Public Use
  Company Number: SPV1-2007-03716

PATIENT
  Age: 15 Year
  Sex: Male
  Weight: 77.1 kg

DRUGS (5)
  1. VYVANSE [Suspect]
     Indication: ASPERGER'S DISORDER
     Dosage: 50 MG, 1X/DAY:QD, ORAL
     Route: 048
     Dates: start: 20070727
  2. VYVANSE [Suspect]
     Indication: ATTENTION DEFICIT/HYPERACTIVITY DISORDER
     Dosage: 50 MG, 1X/DAY:QD, ORAL
     Route: 048
     Dates: start: 20070727
  3. ZONEGRAN (ZONISAMIDE) CAPSULES [Concomitant]
  4. SINGULAIR /01362602/ [Concomitant]
  5. (MONTELUKAST SODIUM) TABLET [Concomitant]

REACTIONS (5)
  - BLOOD PRESSURE INCREASED [None]
  - HEADACHE [None]
  - HEART RATE IRREGULAR [None]
  - MUSCLE SPASMS [None]
  - OFF LABEL USE [None]
